FAERS Safety Report 7333355-9 (Version None)
Quarter: 2011Q1

REPORT INFORMATION
  Report Type: 
  Country: None (occurrence: None)
  Receive Date: 20110304
  Receipt Date: 20110218
  Transmission Date: 20110831
  Serious: Yes (Death)
  Sender: FDA-Public Use
  Company Number: US-CELGENEUS-163-21880-11022386

PATIENT
  Sex: Male

DRUGS (4)
  1. HYDROCODONE BITARTRATE AND ACETAMINOPHEN [Concomitant]
     Route: 065
  2. SYNTHROID [Concomitant]
     Route: 065
  3. REVLIMID [Suspect]
     Indication: HODGKIN'S DISEASE
     Dosage: 15 MILLIGRAM
     Route: 048
     Dates: start: 20090901
  4. EVEROLIMUS [Concomitant]
     Route: 065

REACTIONS (1)
  - DEATH [None]
